FAERS Safety Report 4783370-4 (Version None)
Quarter: 2005Q3

REPORT INFORMATION
  Report Type: 
  Country: None (occurrence: None)
  Receive Date: 20050928
  Receipt Date: 20050913
  Transmission Date: 20060218
  Serious: Yes (Death)
  Sender: FDA-Public Use
  Company Number: 2005ST000090

PATIENT

DRUGS (2)
  1. ZEGERID [Suspect]
     Indication: PROPHYLAXIS
     Dosage: 1 MG/KG; 1X; NGT
  2. ZEGERID [Suspect]
     Indication: STRESS ULCER
     Dosage: 1 MG/KG; 1X; NGT

REACTIONS (1)
  - DEATH [None]
